FAERS Safety Report 4500500-X (Version None)
Quarter: 2004Q3

REPORT INFORMATION
  Report Type: 
  Country: None (occurrence: None)
  Receive Date: 20040928
  Receipt Date: 20040802
  Transmission Date: 20050211
  Serious: No
  Sender: FDA-Public Use
  Company Number: 03P-163-0235012-00

PATIENT
  Age: 80 Year
  Sex: Female
  Weight: 53.5244 kg

DRUGS (16)
  1. HUMIRA [Suspect]
     Indication: RHEUMATOID ARTHRITIS
     Dosage: 40 MG, 1 IN 2 WK, SUBCUTANEOUS
     Route: 058
     Dates: start: 20030918, end: 20040101
  2. METOPROLOL SUCCINATE [Concomitant]
  3. LOSARTAN POTASSIUM [Concomitant]
  4. METAXALONE [Concomitant]
  5. CHOLINE MAGNESIUM [Concomitant]
  6. LEVOTHYROXINE SODIUM [Concomitant]
  7. PAIN MEDICATION [Concomitant]
  8. PREDNISONE [Concomitant]
  9. FOLIC ACID [Concomitant]
  10. METHOTREXATE [Concomitant]
  11. PROPACET 100 [Concomitant]
  12. CALCIUM [Concomitant]
  13. TOCOPHEROL CONCENTRATE CAP [Concomitant]
  14. ASCORBIC ACID [Concomitant]
  15. OCCUTAB [Concomitant]
  16. PROGESTERONE [Concomitant]

REACTIONS (5)
  - FATIGUE [None]
  - HYPOTHYROIDISM [None]
  - MOBILITY DECREASED [None]
  - NAUSEA [None]
  - PAIN IN EXTREMITY [None]
